FAERS Safety Report 25328249 (Version 1)
Quarter: 2025Q2

REPORT INFORMATION
  Report Type: Spontaneous
  Country: DE (occurrence: DE)
  Receive Date: 20250518
  Receipt Date: 20250518
  Transmission Date: 20250717
  Serious: Yes (Hospitalization)
  Sender: JOHNSON AND JOHNSON
  Company Number: DE-JNJFOC-20250515000

PATIENT
  Sex: Female

DRUGS (2)
  1. SPRAVATO [Suspect]
     Active Substance: ESKETAMINE
     Indication: Suicidal ideation
     Route: 045
  2. SPRAVATO [Suspect]
     Active Substance: ESKETAMINE
     Route: 045
     Dates: start: 20250502

REACTIONS (7)
  - Seizure [Recovered/Resolved]
  - Dyspnoea [Unknown]
  - Erythema [Unknown]
  - Nightmare [Unknown]
  - Somnolence [Unknown]
  - Tremor [Unknown]
  - Anxiety [Unknown]
